FAERS Safety Report 12530546 (Version 2)
Quarter: 2016Q4

REPORT INFORMATION
  Report Type: Spontaneous
  Country: US (occurrence: US)
  Receive Date: 20160706
  Receipt Date: 20161108
  Transmission Date: 20170207
  Serious: No
  Sender: FDA-Public Use
  Company Number: US-GLAXOSMITHKLINE-US2016090285

PATIENT
  Age: 59 Year
  Sex: Male

DRUGS (11)
  1. METOPROLOL. [Concomitant]
     Active Substance: METOPROLOL
  2. VENTOLIN [Concomitant]
     Active Substance: ALBUTEROL SULFATE
  3. ATORVASTATIN [Concomitant]
     Active Substance: ATORVASTATIN
  4. FISH OIL [Concomitant]
     Active Substance: FISH OIL
  5. MELOXICAM. [Concomitant]
     Active Substance: MELOXICAM
  6. PREDNISONE. [Concomitant]
     Active Substance: PREDNISONE
  7. PROPECIA [Concomitant]
     Active Substance: FINASTERIDE
  8. OXYCODONE [Concomitant]
     Active Substance: OXYCODONE
  9. BREO ELLIPTA [Suspect]
     Active Substance: FLUTICASONE FUROATE\VILANTEROL TRIFENATATE
     Indication: CHRONIC OBSTRUCTIVE PULMONARY DISEASE
     Dosage: 1 PUFF(S), BID
     Route: 055
     Dates: start: 201604
  10. VITAMIN B12 [Concomitant]
     Active Substance: CYANOCOBALAMIN
  11. LIPITOR [Concomitant]
     Active Substance: ATORVASTATIN CALCIUM

REACTIONS (3)
  - Rash papular [Not Recovered/Not Resolved]
  - Drug prescribing error [Unknown]
  - Erythema [Not Recovered/Not Resolved]

NARRATIVE: CASE EVENT DATE: 201604
